FAERS Safety Report 11661661 (Version 3)
Quarter: 2016Q1

REPORT INFORMATION
  Report Type: Spontaneous
  Country: US (occurrence: US)
  Receive Date: 20151026
  Receipt Date: 20160307
  Transmission Date: 20160525
  Serious: No
  Sender: FDA-Public Use
  Company Number: US-PFIZER INC-2015357013

PATIENT
  Age: 74 Year
  Sex: Female
  Weight: 73 kg

DRUGS (2)
  1. GABAPENTIN. [Suspect]
     Active Substance: GABAPENTIN
     Dosage: 300 MG, UNK
  2. GABAPENTIN. [Suspect]
     Active Substance: GABAPENTIN
     Dosage: 600 MG, 2X/DAY
     Route: 048
     Dates: start: 2014, end: 201508

REACTIONS (3)
  - Pain [Unknown]
  - Weight increased [Unknown]
  - Drug effect decreased [Unknown]
